FAERS Safety Report 5591121-9 (Version None)
Quarter: 2008Q1

REPORT INFORMATION
  Report Type: 
  Country: None (occurrence: None)
  Receive Date: 20080115
  Receipt Date: 20080107
  Transmission Date: 20080703
  Serious: Yes (Hospitalization, Other)
  Sender: FDA-Public Use
  Company Number: US-ASTRAZENECA-2008UW00356

PATIENT
  Age: 51 Year
  Sex: Male
  Weight: 90.7 kg

DRUGS (4)
  1. SEROQUEL [Suspect]
     Route: 048
  2. SEROQUEL [Suspect]
     Route: 048
  3. PROZAC [Concomitant]
  4. PROZAC [Concomitant]

REACTIONS (3)
  - DEPRESSION [None]
  - FEELING DRUNK [None]
  - MANIA [None]
